FAERS Safety Report 10594479 (Version 3)
Quarter: 2015Q1

REPORT INFORMATION
  Report Type: Report from Study
  Country: BR (occurrence: BR)
  Receive Date: 20141119
  Receipt Date: 20150305
  Transmission Date: 20150720
  Serious: Yes (Hospitalization, Other)
  Sender: FDA-Public Use
  Company Number: BR-ABBVIE-14K-020-1309155-00

PATIENT
  Age: 59 Year
  Sex: Female
  Weight: 90 kg

DRUGS (17)
  1. PROPRANOLOL [Concomitant]
     Active Substance: PROPRANOLOL\PROPRANOLOL HYDROCHLORIDE
     Indication: HYPERTENSION
     Route: 048
     Dates: start: 2010
  2. CALCIUM [Concomitant]
     Active Substance: CALCIUM
     Indication: OSTEOPENIA
     Route: 048
     Dates: start: 2014
  3. HUMIRA [Suspect]
     Active Substance: ADALIMUMAB
     Indication: PSORIATIC ARTHROPATHY
     Route: 058
     Dates: start: 20140818
  4. IMIPRAMINE [Suspect]
     Active Substance: IMIPRAMINE
     Indication: BLADDER DISORDER
     Route: 048
     Dates: start: 201502
  5. DECADRON [Suspect]
     Active Substance: DEXAMETHASONE
     Indication: PAIN
     Route: 042
     Dates: start: 201501, end: 201501
  6. DEFLAZACORT / DIACEREIN / CYCLOBENZAPRINE [Concomitant]
     Indication: ARTHRITIS
     Route: 048
     Dates: start: 2012
  7. PROPRANOLOL HYDROCHLORIDE. [Concomitant]
     Active Substance: PROPRANOLOL HYDROCHLORIDE
     Indication: CARDIAC DISORDER
  8. METHOTREXATE [Concomitant]
     Active Substance: METHOTREXATE
     Indication: ARTHRITIS
     Route: 048
     Dates: start: 2014, end: 201411
  9. METHOTREXATE [Concomitant]
     Active Substance: METHOTREXATE
     Route: 048
     Dates: start: 201502
  10. FOLIC ACID. [Concomitant]
     Active Substance: FOLIC ACID
     Indication: OSTEOPENIA
     Route: 048
     Dates: start: 2014
  11. PROPRANOLOL HYDROCHLORIDE. [Concomitant]
     Active Substance: PROPRANOLOL HYDROCHLORIDE
     Indication: HYPERTENSION
     Route: 048
  12. IMIPRAMINE [Suspect]
     Active Substance: IMIPRAMINE
     Indication: DEPRESSION
     Route: 048
     Dates: start: 1994
  13. FOLIC ACID. [Concomitant]
     Active Substance: FOLIC ACID
     Indication: OSTEOPENIA
     Route: 048
     Dates: start: 2014
  14. DIPYRONE [Suspect]
     Active Substance: DIPYRONE
     Indication: PAIN
     Route: 042
     Dates: start: 201501, end: 201501
  15. DEFLAZACORT / DIACEREIN / CYCLOBENZAPRINE [Concomitant]
     Indication: RHEUMATIC DISORDER
  16. IMIPRAMINE [Suspect]
     Active Substance: IMIPRAMINE
     Indication: LEIOMYOMA
     Route: 048
     Dates: start: 2000, end: 201502
  17. VITERSOL D [Concomitant]
     Active Substance: CHOLECALCIFEROL
     Indication: VITAMIN SUPPLEMENTATION
     Route: 048

REACTIONS (24)
  - Pain [Unknown]
  - Pain in extremity [Not Recovered/Not Resolved]
  - Dyspnoea [Recovering/Resolving]
  - Immunodeficiency [Unknown]
  - Overweight [Unknown]
  - Lip disorder [Not Recovered/Not Resolved]
  - Tremor [Recovering/Resolving]
  - Nausea [Not Recovered/Not Resolved]
  - Psychiatric symptom [Unknown]
  - Dry throat [Not Recovered/Not Resolved]
  - Emotional distress [Unknown]
  - Decreased appetite [Unknown]
  - Hyperhidrosis [Not Recovered/Not Resolved]
  - Dry mouth [Not Recovered/Not Resolved]
  - Depression [Unknown]
  - Influenza [Not Recovered/Not Resolved]
  - Thirst [Not Recovered/Not Resolved]
  - Musculoskeletal stiffness [Not Recovered/Not Resolved]
  - Hypertension [Unknown]
  - Gait disturbance [Recovering/Resolving]
  - Abdominal pain [Not Recovered/Not Resolved]
  - Weight decreased [Unknown]
  - Feeling abnormal [Unknown]
  - Erythema [Unknown]

NARRATIVE: CASE EVENT DATE: 2014
